FAERS Safety Report 8585849-6 (Version None)
Quarter: 2012Q3

REPORT INFORMATION
  Report Type: 
  Country: None (occurrence: None)
  Receive Date: 20120810
  Receipt Date: 20120807
  Transmission Date: 20120928
  Serious: Yes (Other)
  Sender: FDA-Public Use
  Company Number: US-PFIZER INC-2012167712

PATIENT
  Age: 78 Year
  Sex: Male

DRUGS (2)
  1. SUTENT [Suspect]
     Dosage: 25 MG, 2X/DAY
     Route: 048
     Dates: start: 20120126, end: 20120601
  2. SUTENT [Suspect]
     Indication: RENAL CANCER
     Dosage: 25 MG, UNK
     Dates: start: 20111122, end: 20120608

REACTIONS (4)
  - PANCYTOPENIA [None]
  - LIVER DISORDER [None]
  - ACCELERATED HYPERTENSION [None]
  - TOXICITY TO VARIOUS AGENTS [None]
